FAERS Safety Report 6983474-1 (Version None)
Quarter: 2010Q3

REPORT INFORMATION
  Report Type: 
  Country: None (occurrence: None)
  Receive Date: 20100914
  Receipt Date: 20080626
  Transmission Date: 20110219
  Serious: No
  Sender: FDA-Public Use
  Company Number: US-WYE-H04754308

PATIENT
  Sex: Female

DRUGS (1)
  1. ADVIL LIQUI-GELS [Suspect]
     Indication: ARTHRITIS
     Route: 048
     Dates: start: 20080401

REACTIONS (2)
  - DYSPEPSIA [None]
  - THERAPEUTIC RESPONSE UNEXPECTED [None]
